FAERS Safety Report 12885172 (Version 2)
Quarter: 2016Q4

REPORT INFORMATION
  Report Type: Report from Study
  Country: US (occurrence: US)
  Receive Date: 20161026
  Receipt Date: 20161117
  Transmission Date: 20170207
  Serious: Yes (Hospitalization, Other)
  Sender: FDA-Public Use
  Company Number: US-GILEAD-2016-0240031

PATIENT
  Age: 1 Year
  Sex: Male
  Weight: 9 kg

DRUGS (22)
  1. HEPARIN LOCK FLUSH [Concomitant]
     Active Substance: HEPARIN SODIUM
     Dosage: UNK, QD
     Route: 042
     Dates: start: 20160509
  2. POLYETHYLENE GLYCOL [Concomitant]
     Active Substance: POLYETHYLENE GLYCOLS
     Indication: CONSTIPATION
     Dosage: UNK, PRN
     Route: 048
     Dates: start: 20160125
  3. SODIUM CHLORIDE. [Concomitant]
     Active Substance: SODIUM CHLORIDE
     Indication: CHRONIC RESPIRATORY FAILURE
     Dosage: UNK, PRN
     Dates: start: 20160705
  4. LEVOTHYROXINE SODIUM. [Concomitant]
     Active Substance: LEVOTHYROXINE SODIUM
     Indication: PRIMARY HYPOTHYROIDISM
     Dosage: 25 UG, QD
     Route: 048
     Dates: start: 20160125
  5. BROMOCRIPTINE MESYLATE [Concomitant]
     Active Substance: BROMOCRIPTINE MESYLATE
     Indication: PYREXIA
     Dosage: 0.625 MG, BID
     Route: 048
     Dates: start: 20160125
  6. BROMOCRIPTINE MESYLATE [Concomitant]
     Active Substance: BROMOCRIPTINE MESYLATE
     Indication: TEMPERATURE REGULATION DISORDER
  7. AQUAPHOR                           /00298701/ [Concomitant]
     Dosage: UNK, PRN
     Dates: start: 20160204
  8. FLOVENT HFA [Concomitant]
     Active Substance: FLUTICASONE PROPIONATE
     Indication: PULMONARY FIBROSIS
     Dosage: UNK, BID
     Dates: start: 20160208
  9. ACETAMINOPHEN. [Concomitant]
     Active Substance: ACETAMINOPHEN
     Dosage: 128 MG, PRN
     Route: 048
     Dates: start: 20160125
  10. PROAIR HFA [Concomitant]
     Active Substance: ALBUTEROL SULFATE
     Indication: PULMONARY FIBROSIS
     Dosage: UNK, PRN
     Dates: start: 20160204
  11. AMBRISENTAN [Suspect]
     Active Substance: AMBRISENTAN
     Indication: PULMONARY ARTERIAL HYPERTENSION
     Dosage: 1.25 MG, QD
     Route: 048
     Dates: start: 20160125, end: 20160820
  12. AMBRISENTAN [Suspect]
     Active Substance: AMBRISENTAN
     Indication: TRISOMY 21
  13. GLYCERIN                           /00200601/ [Concomitant]
     Active Substance: GLYCERIN
     Indication: CONSTIPATION
     Dosage: UNK, PRN
     Route: 054
     Dates: start: 20160125
  14. SENNA                              /00142201/ [Concomitant]
     Active Substance: SENNA LEAF
     Indication: CONSTIPATION
     Dosage: 2.5 ML, PRN
     Route: 048
     Dates: start: 20160125
  15. SODIUM CHLORIDE. [Concomitant]
     Active Substance: SODIUM CHLORIDE
     Indication: HYPONATRAEMIA
     Dosage: 4 MEQ, BID
     Route: 048
     Dates: start: 20160125
  16. RANITIDINE HCL [Concomitant]
     Active Substance: RANITIDINE HYDROCHLORIDE
     Dosage: 16.5 MG, BID
     Route: 048
     Dates: start: 20160504
  17. MELATONIN [Concomitant]
     Active Substance: MELATONIN
     Indication: SLEEP DISORDER
     Dosage: 1.5 MG, QD
     Route: 048
     Dates: start: 20160125
  18. ALBUTEROL SULFATE. [Concomitant]
     Active Substance: ALBUTEROL SULFATE
     Indication: PULMONARY FIBROSIS
     Dosage: UNK, PRN
     Dates: start: 20160204
  19. ERYPED [Concomitant]
     Active Substance: ERYTHROMYCIN ETHYLSUCCINATE
     Indication: IMPAIRED GASTRIC EMPTYING
     Dosage: 0.5 ML, BID
     Route: 048
     Dates: start: 20160509
  20. FUROSEMIDE. [Concomitant]
     Active Substance: FUROSEMIDE
     Indication: PULMONARY HYPERTENSION
     Dosage: 12 MG, BID
     Route: 048
     Dates: start: 20160125
  21. POTASSIUM CHLORIDE. [Concomitant]
     Active Substance: POTASSIUM CHLORIDE
     Indication: HYPOKALAEMIA
     Dosage: 12 MEQ, BID
     Route: 048
     Dates: start: 20160125
  22. IBUPROFEN. [Concomitant]
     Active Substance: IBUPROFEN
     Dosage: 4.25 ML, PRN
     Route: 048
     Dates: start: 20160125

REACTIONS (8)
  - Unevaluable event [Unknown]
  - Drug dose omission [Unknown]
  - Respiratory disorder [Recovered/Resolved]
  - Cough [Recovered/Resolved]
  - Enterococcal infection [Unknown]
  - Diarrhoea [Unknown]
  - Pyrexia [Recovered/Resolved]
  - Off label use [Not Recovered/Not Resolved]

NARRATIVE: CASE EVENT DATE: 20161018
